FAERS Safety Report 4430521-7 (Version None)
Quarter: 2004Q3

REPORT INFORMATION
  Report Type: 
  Country: None (occurrence: None)
  Receive Date: 20040721
  Receipt Date: 20031110
  Transmission Date: 20050211
  Serious: Yes (Other)
  Sender: FDA-Public Use
  Company Number: OMPQ-PR-0311S-0897

PATIENT
  Sex: Male

DRUGS (1)
  1. OMNIPAQUE 180 [Suspect]
     Indication: DRUG USE FOR UNKNOWN INDICATION
     Dosage: 100 ML, SINGLE DOSE, I.V.
     Route: 042
     Dates: start: 20030101, end: 20030101

REACTIONS (1)
  - ANAPHYLACTIC REACTION [None]
